FAERS Safety Report 4818953-6 (Version None)
Quarter: 2005Q4

REPORT INFORMATION
  Report Type: 
  Country: None (occurrence: None)
  Receive Date: 20051101
  Receipt Date: 20051019
  Transmission Date: 20060501
  Serious: Yes (Hospitalization)
  Sender: FDA-Public Use
  Company Number: 2005P1000481

PATIENT
  Age: 79 Year
  Sex: Female
  Weight: 75 kg

DRUGS (9)
  1. RETEPLASE (RETEPLASE) [Suspect]
     Indication: ACUTE MYOCARDIAL INFARCTION
     Dosage: IV
     Route: 042
     Dates: start: 20041216, end: 20041216
  2. ABCIXIMAB (ABCIXIMAB) [Suspect]
     Indication: ACUTE MYOCARDIAL INFARCTION
     Dosage: IV
     Route: 042
     Dates: start: 20041216, end: 20041216
  3. BETAHISTINE [Concomitant]
  4. MOLSIDOMINE [Concomitant]
  5. CLOPIDOGREL BISULFATE [Concomitant]
  6. SERTRALINE HCL [Concomitant]
  7. MADOPAR [Concomitant]
  8. SIMVASTATIN [Concomitant]
  9. ASPIRIN [Concomitant]

REACTIONS (1)
  - CORONARY ARTERY STENOSIS [None]
